FAERS Safety Report 13675344 (Version 2)
Quarter: 2017Q3

REPORT INFORMATION
  Report Type: Spontaneous
  Country: US (occurrence: US)
  Receive Date: 20170621
  Receipt Date: 20170901
  Transmission Date: 20171127
  Serious: No
  Sender: FDA-Public Use
  Company Number: US-FRESENIUS KABI-FK201705022

PATIENT
  Age: 25 Week
  Weight: 1 kg

DRUGS (1)
  1. INTRALIPID [Suspect]
     Active Substance: EGG PHOSPHOLIPIDS\GLYCERIN\SOYBEAN OIL
     Indication: PRODUCT USED FOR UNKNOWN INDICATION
     Route: 041

REACTIONS (3)
  - Device related infection [Unknown]
  - Respiratory disorder [Unknown]
  - Serratia test positive [Unknown]

NARRATIVE: CASE EVENT DATE: 20161219
